FAERS Safety Report 17812484 (Version 5)
Quarter: 2020Q3

REPORT INFORMATION
  Report Type: Spontaneous
  Country: US (occurrence: US)
  Receive Date: 20200521
  Receipt Date: 20200720
  Transmission Date: 20201102
  Serious: Yes (Life-Threatening, Other)
  Sender: FDA-Public Use
  Company Number: US-GLAXOSMITHKLINE-US2020AMR085222

PATIENT
  Sex: Female

DRUGS (4)
  1. ZEJULA [Suspect]
     Active Substance: NIRAPARIB
     Indication: METASTASES TO OVARY
     Dosage: 300 MG, QD
     Dates: start: 20200515
  2. METOPROLOL TARTRATE. [Concomitant]
     Active Substance: METOPROLOL TARTRATE
     Indication: PRODUCT USED FOR UNKNOWN INDICATION
     Dosage: UNK
  3. HYDROCODONE BITARTRATE. [Concomitant]
     Active Substance: HYDROCODONE BITARTRATE
     Indication: PRODUCT USED FOR UNKNOWN INDICATION
     Dosage: UNK
  4. SYNTHROID [Concomitant]
     Active Substance: LEVOTHYROXINE SODIUM
     Indication: PRODUCT USED FOR UNKNOWN INDICATION
     Dosage: UNK

REACTIONS (22)
  - Cystitis [Unknown]
  - Carbohydrate antigen 125 increased [Unknown]
  - Asthenia [Unknown]
  - Neuropathy peripheral [Unknown]
  - Dyspnoea [Unknown]
  - Fluid retention [Unknown]
  - Insomnia [Unknown]
  - Pain [Unknown]
  - Abdominal pain [Not Recovered/Not Resolved]
  - Pain in extremity [Unknown]
  - Adverse drug reaction [Unknown]
  - Weight decreased [Unknown]
  - Visual impairment [Unknown]
  - Vision blurred [Unknown]
  - Back pain [Not Recovered/Not Resolved]
  - Pelvic pain [Unknown]
  - Muscle spasms [Unknown]
  - Abdominal pain upper [Unknown]
  - Illness [Unknown]
  - Cognitive disorder [Unknown]
  - Fatigue [Unknown]
  - Constipation [Not Recovered/Not Resolved]
